FAERS Safety Report 8517465 (Version 2)
Quarter: 2012Q4

REPORT INFORMATION
  Report Type: 
  Country: US (occurrence: US)
  Receive Date: 20120417
  Receipt Date: 20121205
  Transmission Date: 20130627
  Serious: No
  Sender: FDA-Public Use
  Company Number: US-ASTRAZENECA-2012SE15123

PATIENT
  Age: 86 Year
  Sex: Female
  Weight: 56.2 kg

DRUGS (3)
  1. NEXIUM [Suspect]
     Indication: GASTROOESOPHAGEAL REFLUX DISEASE
     Route: 048
     Dates: start: 1999
  2. PRILOSEC OTC [Suspect]
     Route: 048
  3. SPIRIVA [Concomitant]

REACTIONS (4)
  - Asthma [Unknown]
  - Aphagia [Unknown]
  - Abdominal pain upper [Unknown]
  - Drug effect incomplete [Unknown]
